FAERS Safety Report 13699057 (Version 2)
Quarter: 2017Q3

REPORT INFORMATION
  Report Type: Spontaneous
  Country: US (occurrence: US)
  Receive Date: 20170628
  Receipt Date: 20170925
  Transmission Date: 20171127
  Serious: Yes (Hospitalization, Other)
  Sender: FDA-Public Use
  Company Number: US-PFIZER INC-2017277628

PATIENT
  Age: 86 Year
  Sex: Male

DRUGS (5)
  1. XANAX [Suspect]
     Active Substance: ALPRAZOLAM
     Dosage: UNK (XANAX WAS DOUBLE IN APR)
  2. XANAX [Suspect]
     Active Substance: ALPRAZOLAM
     Dosage: 2.5 MG, 3X/DAY
  3. NEXIUM [Concomitant]
     Active Substance: ESOMEPRAZOLE MAGNESIUM
     Indication: GASTROOESOPHAGEAL REFLUX DISEASE
     Dosage: UNK
  4. LIVALO [Concomitant]
     Active Substance: PITAVASTATIN CALCIUM
     Indication: GASTROOESOPHAGEAL REFLUX DISEASE
     Dosage: UNK
  5. DONEPEZIL. [Concomitant]
     Active Substance: DONEPEZIL
     Dosage: UNK

REACTIONS (3)
  - Balance disorder [Unknown]
  - Fall [Unknown]
  - Confusional state [Not Recovered/Not Resolved]

NARRATIVE: CASE EVENT DATE: 201705
